FAERS Safety Report 10072419 (Version 1)
Quarter: 2014Q2

REPORT INFORMATION
  Report Type: Spontaneous
  Country: CN (occurrence: CN)
  Receive Date: 20140411
  Receipt Date: 20140411
  Transmission Date: 20141212
  Serious: Yes (Other)
  Sender: FDA-Public Use
  Company Number: CN-009507513-1404CHN003618

PATIENT
  Age: 74 Year
  Sex: Male

DRUGS (4)
  1. PROSCAR [Suspect]
     Indication: BENIGN PROSTATIC HYPERPLASIA
     Dosage: UNK
     Dates: start: 201301, end: 201306
  2. PROSCAR [Suspect]
     Dosage: UNK
     Route: 048
     Dates: start: 201401
  3. HARNAL [Concomitant]
     Indication: BENIGN PROSTATIC HYPERPLASIA
     Dosage: UNK
     Route: 048
     Dates: start: 201401
  4. ANTINEOPLASTIC (UNSPECIFIED) [Concomitant]
     Indication: PROSTATE CANCER
     Dosage: UNK, QM
     Dates: start: 201312

REACTIONS (1)
  - Prostate cancer [Unknown]
